FAERS Safety Report 8399562-1 (Version None)
Quarter: 2012Q2

REPORT INFORMATION
  Report Type: 
  Country: None (occurrence: None)
  Receive Date: 20120531
  Receipt Date: 20120524
  Transmission Date: 20120825
  Serious: Yes (Disabling)
  Sender: FDA-Public Use
  Company Number: US-MERCK-1205USA04983

PATIENT
  Sex: Female

DRUGS (3)
  1. FOSAMAX PLUS D [Suspect]
     Route: 048
     Dates: start: 20031001, end: 20070801
  2. FOSAMAX [Suspect]
     Route: 048
     Dates: start: 20031001, end: 20070801
  3. FOSAMAX [Suspect]
     Route: 048
     Dates: start: 20031001, end: 20070801

REACTIONS (4)
  - MULTIPLE FRACTURES [None]
  - LOW TURNOVER OSTEOPATHY [None]
  - FEMUR FRACTURE [None]
  - OSTEOPOROSIS [None]
